FAERS Safety Report 22172349 (Version 1)
Quarter: 2023Q2

REPORT INFORMATION
  Report Type: Spontaneous
  Country: AR (occurrence: AR)
  Receive Date: 20230404
  Receipt Date: 20230404
  Transmission Date: 20230722
  Serious: Yes (Hospitalization, Other)
  Sender: FDA-Public Use
  Company Number: AR-PFIZER INC-PV202300059829

PATIENT
  Age: 52 Year

DRUGS (2)
  1. TALAZOPARIB [Suspect]
     Active Substance: TALAZOPARIB
     Indication: Breast cancer metastatic
     Dosage: 1 MG
     Dates: start: 20230314, end: 20230327
  2. TALAZOPARIB [Suspect]
     Active Substance: TALAZOPARIB
     Indication: Bone marrow infiltration

REACTIONS (5)
  - Haematotoxicity [Unknown]
  - Platelet count decreased [Unknown]
  - Haematocrit decreased [Unknown]
  - White blood cell count decreased [Unknown]
  - Haemoglobin decreased [Unknown]
